FAERS Safety Report 5960792-7 (Version None)
Quarter: 2008Q4

REPORT INFORMATION
  Report Type: 
  Country: None (occurrence: None)
  Receive Date: 20081120
  Receipt Date: 20081113
  Transmission Date: 20090506
  Serious: Yes (Hospitalization)
  Sender: FDA-Public Use
  Company Number: US-WATSON-2008-06746

PATIENT
  Sex: Female
  Weight: 77 kg

DRUGS (7)
  1. TRELSTAR DEPOT [Suspect]
     Indication: BREAST CANCER
     Dosage: 3.75 MG, UNK
     Route: 030
     Dates: start: 20071219, end: 20080922
  2. AROMASIN [Suspect]
     Indication: BREAST CANCER
     Dosage: 25 MG, DAILY
     Route: 048
     Dates: start: 20071219
  3. TYLENOL (CAPLET) [Concomitant]
     Dosage: UNK
  4. PERCOCET [Concomitant]
     Dosage: UNK
  5. PROTONIX                           /01263201/ [Concomitant]
     Dosage: UNK
  6. ZOLOFT [Concomitant]
     Dosage: UNK
  7. MULTI-VITAMINS [Concomitant]
     Dosage: UNK

REACTIONS (1)
  - PULMONARY EMBOLISM [None]
